FAERS Safety Report 25773553 (Version 1)
Quarter: 2025Q3

REPORT INFORMATION
  Report Type: Spontaneous
  Country: US (occurrence: US)
  Receive Date: 20250908
  Receipt Date: 20250908
  Transmission Date: 20251021
  Serious: No
  Sender: CHIESI
  Company Number: US-CHIESI-2025CHF03771

PATIENT
  Age: 11 Year
  Sex: Female
  Weight: 82 kg

DRUGS (4)
  1. FERRIPROX [Suspect]
     Active Substance: DEFERIPRONE
     Indication: Haemochromatosis
     Dosage: 1500 MILLIGRAM, BID
     Route: 048
     Dates: start: 20240215, end: 202412
  2. FERRIPROX [Suspect]
     Active Substance: DEFERIPRONE
     Indication: Red blood cell transfusion
     Dosage: 2 DOSAGE FORM, BID
     Route: 048
     Dates: start: 202412, end: 202504
  3. FERRIPROX [Suspect]
     Active Substance: DEFERIPRONE
     Indication: Sickle cell disease
     Dosage: 2.5 DOSAGE FORM, BID
     Route: 048
     Dates: start: 202504
  4. FERRIPROX [Suspect]
     Active Substance: DEFERIPRONE
     Dosage: 2 DOSAGE FORM, BID
     Route: 048

REACTIONS (2)
  - Hepatic enzyme increased [Unknown]
  - Off label use [Not Recovered/Not Resolved]

NARRATIVE: CASE EVENT DATE: 20240215
